FAERS Safety Report 8406703-6 (Version None)
Quarter: 2012Q2

REPORT INFORMATION
  Report Type: 
  Country: None (occurrence: None)
  Receive Date: 20120604
  Receipt Date: 20120528
  Transmission Date: 20120825
  Serious: Yes (Other)
  Sender: FDA-Public Use
  Company Number: PHHY2009BR06085

PATIENT
  Age: 81 Year
  Sex: Female

DRUGS (1)
  1. GALVUS MET COMBIPACK [Suspect]
     Indication: DIABETES MELLITUS
     Dosage: UNK UKN, UNK

REACTIONS (4)
  - BLOOD GLUCOSE INCREASED [None]
  - GAIT DISTURBANCE [None]
  - OSTEOARTHRITIS [None]
  - PAIN [None]
